FAERS Safety Report 9640599 (Version 2)
Quarter: 2013Q4

REPORT INFORMATION
  Report Type: Report from Study
  Country: US (occurrence: US)
  Receive Date: 20131023
  Receipt Date: 20131023
  Transmission Date: 20140711
  Serious: No
  Sender: FDA-Public Use
  Company Number: US-ABBVIE-13P-163-1109765-00

PATIENT
  Age: 25 Year
  Sex: Female

DRUGS (4)
  1. LUPRON DEPOT 3.75MG [Suspect]
     Indication: ENDOMETRIOSIS
     Dates: start: 20130408, end: 201305
  2. LUPRON DEPOT 11.25MG [Suspect]
     Indication: ENDOMETRIOSIS
     Dates: start: 20130624
  3. NORETHINDRONE ACETATE [Suspect]
     Indication: PRODUCT USED FOR UNKNOWN INDICATION
     Route: 048
     Dates: start: 20130409
  4. NORETHINDRONE ACETATE [Suspect]
     Route: 048
     Dates: start: 20130625, end: 20130702

REACTIONS (7)
  - Abdominal pain [Recovering/Resolving]
  - Mood swings [Recovered/Resolved]
  - Memory impairment [Recovered/Resolved]
  - Amenorrhoea [Unknown]
  - Abnormal behaviour [Recovering/Resolving]
  - Irritability [Recovering/Resolving]
  - Haemorrhage [Recovered/Resolved]
